FAERS Safety Report 15403127 (Version 1)
Quarter: 2018Q3

REPORT INFORMATION
  Report Type: Spontaneous
  Country: US (occurrence: US)
  Receive Date: 20180919
  Receipt Date: 20180919
  Transmission Date: 20181010
  Serious: Yes (Other)
  Sender: FDA-Public Use
  Company Number: US-PFIZER INC-2018374798

PATIENT
  Age: 70 Year
  Sex: Female
  Weight: 97.7 kg

DRUGS (10)
  1. MILRINONE [Suspect]
     Active Substance: MILRINONE
     Indication: CARDIAC DISORDER
  2. ELIQUIS [Concomitant]
     Active Substance: APIXABAN
  3. AMIODARONE [Concomitant]
     Active Substance: AMIODARONE
  4. ALLOPURINOL. [Concomitant]
     Active Substance: ALLOPURINOL
  5. ENTRESTO [Concomitant]
     Active Substance: SACUBITRIL\VALSARTAN
  6. INSPRA [Suspect]
     Active Substance: EPLERENONE
     Indication: CARDIAC FAILURE
     Dosage: 25 MG, 1X/DAY
  7. LEVOTHYROXINE. [Concomitant]
     Active Substance: LEVOTHYROXINE
  8. BUMEX [Concomitant]
     Active Substance: BUMETANIDE
  9. EPLERENONE. [Suspect]
     Active Substance: EPLERENONE
     Indication: CARDIAC FAILURE
     Dosage: 25 MG, 1X/DAY
  10. COREG [Concomitant]
     Active Substance: CARVEDILOL

REACTIONS (2)
  - Cardiac disorder [Unknown]
  - Condition aggravated [Unknown]
